FAERS Safety Report 10162672 (Version 2)
Quarter: 2014Q2

REPORT INFORMATION
  Report Type: Spontaneous
  Country: US (occurrence: US)
  Receive Date: 20140509
  Receipt Date: 20140512
  Transmission Date: 20141212
  Serious: No
  Sender: FDA-Public Use
  Company Number: US-PFIZER INC-2014126920

PATIENT
  Age: 63 Year
  Sex: Male
  Weight: 88.44 kg

DRUGS (3)
  1. INLYTA [Suspect]
     Indication: RENAL CELL CARCINOMA
     Dosage: 5 MG, 2X/DAY
     Dates: start: 20140414
  2. COREG [Concomitant]
     Indication: ATRIAL FIBRILLATION
     Dosage: UNK (ONE AND HALF TABLET), 2X/DAY
  3. WARFARIN [Concomitant]
     Dosage: UNK (ONE AND HALF TABLET), DAILY

REACTIONS (1)
  - Dyspnoea [Unknown]
